FAERS Safety Report 17485302 (Version 2)
Quarter: 2020Q1

REPORT INFORMATION
  Report Type: Report from Study
  Country: GB (occurrence: GB)
  Receive Date: 20200302
  Receipt Date: 20200313
  Transmission Date: 20200409
  Serious: Yes (Hospitalization)
  Sender: FDA-Public Use
  Company Number: GB-SAMSUNG BIOEPIS-SB-2020-06212

PATIENT
  Sex: Female

DRUGS (3)
  1. IMRALDI [Suspect]
     Active Substance: ADALIMUMAB
     Dosage: WEEK 2
     Route: 058
  2. IMRALDI [Suspect]
     Active Substance: ADALIMUMAB
     Indication: COLITIS ULCERATIVE
     Dosage: WEEK 0
     Route: 058
     Dates: start: 20200129
  3. IMRALDI [Suspect]
     Active Substance: ADALIMUMAB
     Route: 058

REACTIONS (8)
  - Malaise [Unknown]
  - Headache [Unknown]
  - Dizziness [Recovered/Resolved]
  - Urinary tract infection [Recovered/Resolved]
  - Depressed mood [Unknown]
  - Fatigue [Not Recovered/Not Resolved]
  - Viral rash [Recovered/Resolved]
  - Injection site erythema [Recovered/Resolved]
